FAERS Safety Report 8773782 (Version 1)
Quarter: 2012Q4

REPORT INFORMATION
  Report Type: 
  Country: US (occurrence: US)
  Receive Date: 20120907
  Receipt Date: 20120907
  Transmission Date: 20130627
  Serious: Yes (Hospitalization, Disabling, Other)
  Sender: FDA-Public Use
  Company Number: US-009507513-1203USA03318

PATIENT

DRUGS (5)
  1. FOSAMAX [Suspect]
     Indication: OSTEOPOROSIS PROPHYLAXIS
     Dosage: 10 mg, qd
     Route: 048
     Dates: start: 19960701, end: 200806
  2. FOSAMAX [Suspect]
     Indication: OSTEOPENIA
     Dosage: 70 mg, UNK
     Route: 048
     Dates: end: 2008
  3. FOSAMAX [Suspect]
     Indication: OSTEOPENIA
     Dosage: 70 mg, UNK
     Route: 048
     Dates: start: 200806, end: 200812
  4. CALCIUM (UNSPECIFIED) (+) VITAMIN D (UNSPECIFIED) [Concomitant]
     Dosage: 600 mg, UNK
  5. ONE-A-DAY WOMEN^S [Concomitant]
     Dosage: UNK, qd
     Route: 048

REACTIONS (22)
  - Femur fracture [Unknown]
  - Osteoporosis [Unknown]
  - Stress fracture [Unknown]
  - Low turnover osteopathy [Unknown]
  - Femur fracture [Recovering/Resolving]
  - Osteoarthritis [Not Recovered/Not Resolved]
  - Intervertebral disc degeneration [Unknown]
  - Spondylolisthesis [Unknown]
  - Vitamin D deficiency [Not Recovered/Not Resolved]
  - Hyperlipidaemia [Unknown]
  - Anaemia postoperative [Recovered/Resolved]
  - Arthropathy [Unknown]
  - Liver function test abnormal [Not Recovered/Not Resolved]
  - Gastrooesophageal reflux disease [Unknown]
  - Arthropathy [Unknown]
  - Functional gastrointestinal disorder [Unknown]
  - Tonsillitis [Unknown]
  - Pharyngitis streptococcal [Unknown]
  - Hypersensitivity [Unknown]
  - Intramedullary rod insertion [Unknown]
  - Osteoarthritis [Not Recovered/Not Resolved]
  - Device malfunction [Unknown]
